FAERS Safety Report 16570163 (Version 1)
Quarter: 2019Q3

REPORT INFORMATION
  Report Type: Spontaneous
  Country: DE (occurrence: DE)
  Receive Date: 20190715
  Receipt Date: 20190715
  Transmission Date: 20191004
  Serious: Yes (Hospitalization)
  Sender: FDA-Public Use
  Company Number: DE-TEVA-2019-DE-1076709

PATIENT
  Age: 60 Year
  Sex: Male

DRUGS (11)
  1. MOXONIDIN HEUMANN 0,3MG HEUNET [Concomitant]
     Dosage: 0.30 MG, 1-01-0
  2. OXALIPLATIN. [Suspect]
     Active Substance: OXALIPLATIN
     Dosage: NK MG, LAST SEEN ON OCT 20, 2017
     Route: 065
  3. CLEXANE 100MG [Concomitant]
     Dosage: 100 MG, 1-0-0-0
     Route: 058
  4. FOLINSAURE [Suspect]
     Active Substance: LEUCOVORIN
     Dosage: NK MG, LAST SEEN ON OCT 20, 2017
     Route: 065
  5. METOBETA 50 [Concomitant]
     Dosage: 50 MG, 1-0-1-0
  6. TORASEMID-1A PHARMA 10MG [Concomitant]
     Dosage: 10 MG, 1-0-0-0
  7. AMLODIPIN [Concomitant]
     Active Substance: AMLODIPINE BESYLATE
     Dosage: 10 MG, 0-0-1-0
  8. NAC 600 [Concomitant]
     Dosage: 600 MG, 1-0-0-0
  9. FLUOROURACIL. [Suspect]
     Active Substance: FLUOROURACIL
     Dosage: NK MG, LAST SEEN ON OCT 20, 2017
     Route: 065
  10. CANDESARTAN. [Concomitant]
     Active Substance: CANDESARTAN
     Dosage: 16 MG, 1-0-0-0
  11. TRI-NORMIN 25 [Concomitant]
     Dosage: 25|25|12.5 MG, 1-0-0-0

REACTIONS (1)
  - Constipation [Unknown]

NARRATIVE: CASE EVENT DATE: 20171019
